FAERS Safety Report 9671815 (Version 2)
Quarter: 2013Q4

REPORT INFORMATION
  Report Type: Spontaneous
  Country: FR (occurrence: FR)
  Receive Date: 20131106
  Receipt Date: 20131220
  Transmission Date: 20140711
  Serious: Yes (Hospitalization)
  Sender: FDA-Public Use
  Company Number: FR-JNJFOC-20131102425

PATIENT
  Age: 52 Year
  Sex: Female

DRUGS (3)
  1. XARELTO [Suspect]
     Indication: CEREBROVASCULAR ACCIDENT PROPHYLAXIS
     Route: 048
     Dates: start: 201302, end: 20131001
  2. XARELTO [Suspect]
     Indication: ATRIAL FIBRILLATION
     Route: 048
     Dates: start: 201302, end: 20131001
  3. GUTRON [Concomitant]
     Route: 065
     Dates: start: 201306

REACTIONS (3)
  - Menorrhagia [Recovered/Resolved]
  - Asthenia [Recovered/Resolved with Sequelae]
  - Anaemia [Recovered/Resolved]
